FAERS Safety Report 5875009-1 (Version None)
Quarter: 2008Q3

REPORT INFORMATION
  Report Type: 
  Country: None (occurrence: None)
  Receive Date: 20080908
  Receipt Date: 20080908
  Transmission Date: 20090109
  Serious: Yes (Other)
  Sender: FDA-Public Use
  Company Number: None

PATIENT
  Age: 6 Year
  Sex: Male
  Weight: 27.2158 kg

DRUGS (1)
  1. ZITHROMAX [Suspect]
     Indication: EAR INFECTION
     Dosage: 250 MG DAILY PO
     Route: 048

REACTIONS (8)
  - ABDOMINAL DISTENSION [None]
  - ABDOMINAL PAIN UPPER [None]
  - CHEST PAIN [None]
  - DISCOMFORT [None]
  - DYSPNOEA [None]
  - ERUCTATION [None]
  - HYPERHIDROSIS [None]
  - STEATORRHOEA [None]
